FAERS Safety Report 14315075 (Version 1)
Quarter: 2017Q4

REPORT INFORMATION
  Report Type: Spontaneous
  Country: US (occurrence: US)
  Receive Date: 20171221
  Receipt Date: 20171221
  Transmission Date: 20180321
  Serious: Yes (Hospitalization)
  Sender: FDA-Public Use
  Company Number: US-BRAINTREE LABORATORIES-170711

PATIENT
  Age: 89 Year
  Sex: Male
  Weight: 81.65 kg

DRUGS (1)
  1. GOLYTELY [Suspect]
     Active Substance: POLYETHYLENE GLYCOL 3350\POTASSIUM CHLORIDE\SODIUM BICARBONATE\SODIUM CHLORIDE\SODIUM SULFATE ANHYDROUS
     Indication: OFF LABEL USE
     Route: 048
     Dates: start: 20171119, end: 20171119

REACTIONS (5)
  - Wrong technique in product usage process [None]
  - Vomiting [None]
  - Eosinophilic oesophagitis [None]
  - Pneumonia [None]
  - Decubitus ulcer [None]
